FAERS Safety Report 12466411 (Version 3)
Quarter: 2016Q3

REPORT INFORMATION
  Report Type: Spontaneous
  Country: ES (occurrence: ES)
  Receive Date: 20160615
  Receipt Date: 20160705
  Transmission Date: 20161109
  Serious: Yes (Other)
  Sender: FDA-Public Use
  Company Number: ES-BEH-2016070100

PATIENT
  Age: 58 Year
  Sex: Male

DRUGS (1)
  1. PRIVIGEN [Suspect]
     Active Substance: HUMAN IMMUNOGLOBULIN G
     Indication: GUILLAIN-BARRE SYNDROME
     Dosage: 10 UNK, UNK
     Route: 042

REACTIONS (11)
  - Rash vesicular [Recovered/Resolved]
  - Extravasation blood [Recovered/Resolved]
  - Rash erythematous [Recovered/Resolved]
  - Dyshidrotic eczema [Recovered/Resolved]
  - Purpura [Recovered/Resolved]
  - Dermatitis psoriasiform [Recovered/Resolved]
  - Skin disorder [Recovered/Resolved]
  - Inflammation [Recovered/Resolved]
  - Skin lesion [Recovered/Resolved]
  - Perivascular dermatitis [Recovered/Resolved]
  - Eczema [Recovered/Resolved]
